FAERS Safety Report 17858372 (Version 2)
Quarter: 2020Q2

REPORT INFORMATION
  Report Type: Report from Study
  Country: None (occurrence: US)
  Receive Date: 20200604
  Receipt Date: 20200605
  Transmission Date: 20200714
  Serious: No
  Sender: FDA-Public Use
  Company Number: US-US WORLDMEDS, LLC-USW201907-001333

PATIENT
  Age: 81 Year
  Sex: Male
  Weight: 113.3 kg

DRUGS (12)
  1. AMLODIPINE [Concomitant]
     Active Substance: AMLODIPINE BESYLATE
  2. FLUTICASONE. [Concomitant]
     Active Substance: FLUTICASONE
     Dosage: 50 MCG/ACTUATION NASAL SPRAY EACH NOSTRIL
     Route: 045
  3. GABAPENTIN. [Concomitant]
     Active Substance: GABAPENTIN
  4. APOKYN [Suspect]
     Active Substance: APOMORPHINE HYDROCHLORIDE
     Indication: PARKINSON^S DISEASE
     Route: 058
     Dates: start: 20190719
  5. TYLENOL [Concomitant]
     Active Substance: ACETAMINOPHEN
     Dosage: Q6HRS
  6. METOPROLOL. [Concomitant]
     Active Substance: METOPROLOL
  7. CHOLECACIFEROL [Concomitant]
     Dosage: 1000 UNIT
  8. AMANTADINE. [Concomitant]
     Active Substance: AMANTADINE HYDROCHLORIDE
  9. DONEPEZIL. [Concomitant]
     Active Substance: DONEPEZIL
  10. TAMSULOSIN [Concomitant]
     Active Substance: TAMSULOSIN
  11. ASPIRIN (ASA) [Concomitant]
     Active Substance: ASPIRIN
  12. CARBIDOPA/LEVODOPA [Concomitant]
     Active Substance: CARBIDOPA\LEVODOPA
     Dosage: 25/100 MG

REACTIONS (5)
  - Somnolence [Recovered/Resolved]
  - Asthenia [Recovered/Resolved]
  - Heart rate decreased [Recovered/Resolved]
  - Dizziness [Recovered/Resolved]
  - Agitation [Recovered/Resolved]

NARRATIVE: CASE EVENT DATE: 20190719
